FAERS Safety Report 5283118-3 (Version None)
Quarter: 2007Q2

REPORT INFORMATION
  Report Type: 
  Country: None (occurrence: None)
  Receive Date: 20070402
  Receipt Date: 20070320
  Transmission Date: 20071010
  Serious: Yes (Hospitalization)
  Sender: FDA-Public Use
  Company Number: US-ELI_LILLY_AND_COMPANY-US200703004068

PATIENT
  Age: 50 Year
  Sex: Male

DRUGS (7)
  1. CYMBALTA [Suspect]
     Indication: NEURALGIA
     Dosage: 30 MG, 2/D
     Dates: start: 20050101
  2. NEURONTIN [Concomitant]
     Indication: PAIN
  3. AMBIEN [Concomitant]
     Indication: INSOMNIA
  4. MELATONIN [Concomitant]
     Indication: INSOMNIA
  5. ANDROGEL [Concomitant]
     Indication: BLOOD TESTOSTERONE DECREASED
  6. MIGRAINE FORMULA [Concomitant]
     Indication: MIGRAINE
  7. MORPHINE [Concomitant]
     Indication: PAIN

REACTIONS (4)
  - BACK INJURY [None]
  - FALL [None]
  - JOINT INJURY [None]
  - SLEEP DISORDER [None]
